FAERS Safety Report 5011317-4 (Version None)
Quarter: 2006Q2

REPORT INFORMATION
  Report Type: 
  Country: None (occurrence: None)
  Receive Date: 20060525
  Receipt Date: 20060509
  Transmission Date: 20061013
  Serious: Yes (Life-Threatening, Hospitalization)
  Sender: FDA-Public Use
  Company Number: JP-BOEHRINGER INGELHEIM PHARMACEUTICALS, INC.-2006-BP-05253NB

PATIENT
  Sex: Male
  Weight: 54 kg

DRUGS (2)
  1. MOBIC [Suspect]
     Indication: BACK PAIN
     Route: 048
     Dates: start: 20050914, end: 20060502
  2. MUCOSTA [Concomitant]
     Route: 048
     Dates: start: 20050914, end: 20060506

REACTIONS (3)
  - GASTRIC ULCER [None]
  - HAEMORRHAGE [None]
  - STOMACH DISCOMFORT [None]
